FAERS Safety Report 14405320 (Version 1)
Quarter: 2018Q1

REPORT INFORMATION
  Report Type: Spontaneous
  Country: US (occurrence: US)
  Receive Date: 20180118
  Receipt Date: 20180118
  Transmission Date: 20180509
  Serious: Yes (Hospitalization, Other)
  Sender: FDA-Public Use
  Company Number: US-BRISTOL-MYERS SQUIBB COMPANY-BMS-2018-002354

PATIENT
  Sex: Female
  Weight: 44.44 kg

DRUGS (1)
  1. COUMADIN [Suspect]
     Active Substance: WARFARIN SODIUM
     Indication: ATRIAL FIBRILLATION
     Dosage: UNK
     Route: 065

REACTIONS (5)
  - Ankle fracture [Unknown]
  - Weight decreased [Unknown]
  - Swelling [Unknown]
  - Fall [Unknown]
  - Femur fracture [Unknown]
